FAERS Safety Report 24861943 (Version 1)
Quarter: 2025Q1

REPORT INFORMATION
  Report Type: Report from Study
  Country: JP (occurrence: None)
  Receive Date: 20250120
  Receipt Date: 20250120
  Transmission Date: 20250409
  Serious: Yes (Other)
  Sender: ALLEGIS PHARMACEUTICALS
  Company Number: JP-Allegis Pharmaceuticals, LLC-APL202412-000139

PATIENT
  Sex: Female

DRUGS (2)
  1. AZATHIOPRINE [Suspect]
     Active Substance: AZATHIOPRINE
     Indication: Pemphigus
  2. PREDNISOLONE [Concomitant]
     Active Substance: PREDNISOLONE
     Indication: Pemphigus
     Route: 048

REACTIONS (5)
  - Febrile neutropenia [Recovered/Resolved]
  - Myelosuppression [Recovered/Resolved]
  - Abdominal pain upper [Unknown]
  - Alopecia [Recovered/Resolved]
  - Product use in unapproved indication [Unknown]
